FAERS Safety Report 4821070-2 (Version None)
Quarter: 2005Q4

REPORT INFORMATION
  Report Type: 
  Country: None (occurrence: None)
  Receive Date: 20051104
  Receipt Date: 20050114
  Transmission Date: 20060501
  Serious: Yes (Hospitalization, Disabling, Other)
  Sender: FDA-Public Use
  Company Number: US-MERCK-0501USA02217

PATIENT
  Age: 64 Year
  Sex: Female
  Weight: 57 kg

DRUGS (10)
  1. VIOXX [Suspect]
     Indication: BURSITIS
     Route: 048
     Dates: start: 20020101, end: 20040106
  2. VIOXX [Suspect]
     Route: 048
     Dates: start: 20020101, end: 20040101
  3. VIOXX [Suspect]
     Route: 048
     Dates: start: 20040101
  4. VIOXX [Suspect]
     Indication: MONARTHRITIS
     Route: 048
     Dates: start: 20020101, end: 20040106
  5. VIOXX [Suspect]
     Route: 048
     Dates: start: 20020101, end: 20040101
  6. VIOXX [Suspect]
     Route: 048
     Dates: start: 20040101
  7. ATENOLOL MSD [Concomitant]
     Route: 048
  8. ESTRADIOL [Concomitant]
     Route: 065
  9. ASPIRIN [Concomitant]
     Route: 048
  10. GINKGO BILOBA EXTRACT [Concomitant]
     Route: 065
     Dates: start: 19900101

REACTIONS (9)
  - CEREBROVASCULAR ACCIDENT [None]
  - CHEST DISCOMFORT [None]
  - DEPRESSION [None]
  - HEADACHE [None]
  - HYPERTENSION [None]
  - MIGRAINE [None]
  - MYDRIASIS [None]
  - PALPITATIONS [None]
  - PUPILLARY REFLEX IMPAIRED [None]
